FAERS Safety Report 6604590-X (Version None)
Quarter: 2010Q1

REPORT INFORMATION
  Report Type: 
  Country: None (occurrence: None)
  Receive Date: 20100226
  Receipt Date: 20091214
  Transmission Date: 20100710
  Serious: No
  Sender: FDA-Public Use
  Company Number: A0834990A

PATIENT
  Age: 38 Year
  Sex: Female

DRUGS (4)
  1. LAMICTAL CD [Suspect]
     Indication: BIPOLAR DISORDER
     Dosage: 150MG PER DAY
     Route: 048
     Dates: start: 20080101, end: 20091210
  2. ABILIFY [Concomitant]
  3. ADDERALL 30 [Concomitant]
  4. KLONOPIN [Concomitant]

REACTIONS (5)
  - ABNORMAL BEHAVIOUR [None]
  - AVOIDANT PERSONALITY DISORDER [None]
  - EMOTIONAL DISTRESS [None]
  - PERSONALITY CHANGE [None]
  - SELF ESTEEM INFLATED [None]
